FAERS Safety Report 23979376 (Version 1)
Quarter: 2024Q2

REPORT INFORMATION
  Report Type: Report from Study
  Country: US (occurrence: US)
  Receive Date: 20240615
  Receipt Date: 20240615
  Transmission Date: 20240716
  Serious: Yes (Other)
  Sender: FDA-Public Use
  Company Number: US-SANOFI-02085338

PATIENT

DRUGS (1)
  1. DUPILUMAB [Suspect]
     Active Substance: DUPILUMAB
     Indication: Cutaneous T-cell lymphoma

REACTIONS (3)
  - Cutaneous T-cell lymphoma [Unknown]
  - Condition aggravated [Unknown]
  - Off label use [Unknown]
